FAERS Safety Report 25084550 (Version 2)
Quarter: 2025Q2

REPORT INFORMATION
  Report Type: Spontaneous
  Country: IN (occurrence: IN)
  Receive Date: 20250317
  Receipt Date: 20250422
  Transmission Date: 20250717
  Serious: Yes (Hospitalization)
  Sender: PFIZER
  Company Number: IN-PFIZER INC-202200645087

PATIENT
  Age: 85 Year
  Sex: Female

DRUGS (2)
  1. AROMASIN [Suspect]
     Active Substance: EXEMESTANE
     Dosage: 25 MG, 1X/DAY
     Route: 048
     Dates: start: 20211016
  2. CALBON [Concomitant]
     Dosage: 1 DF, 1X/DAY

REACTIONS (6)
  - Fall [Unknown]
  - Femur fracture [Unknown]
  - Osteoarthritis [Unknown]
  - Exostosis [Unknown]
  - Post procedural discomfort [Unknown]
  - Renal cyst [Unknown]

NARRATIVE: CASE EVENT DATE: 20240901
